FAERS Safety Report 8012950-8 (Version None)
Quarter: 2011Q4

REPORT INFORMATION
  Report Type: 
  Country: None (occurrence: None)
  Receive Date: 20111229
  Receipt Date: 20111220
  Transmission Date: 20120403
  Serious: Yes (Other)
  Sender: FDA-Public Use
  Company Number: US-UCBSA-045366

PATIENT
  Age: 57 Year
  Sex: Female
  Weight: 70.31 kg

DRUGS (6)
  1. CIMZIA [Suspect]
     Dosage: TWO SHOTS OF 400 MG
     Route: 058
     Dates: start: 20111118, end: 20111202
  2. CIMZIA [Suspect]
     Indication: RHEUMATOID ARTHRITIS
     Dosage: SHOULD HAVE TAKEN THE INJECTION ON 30/DEC/2011
     Route: 058
     Dates: start: 20111216
  3. CIMZIA [Suspect]
     Dosage: 400 MG ONCE EVERY 2 WEEKS
     Route: 058
     Dates: start: 20111021, end: 20111021
  4. SULFASALAZINE [Concomitant]
     Indication: RHEUMATOID ARTHRITIS
     Route: 048
     Dates: start: 20111001
  5. PREDNISONE TAB [Concomitant]
     Indication: RHEUMATOID ARTHRITIS
     Route: 048
     Dates: start: 20100101
  6. PLAQUENIL [Concomitant]
     Indication: RHEUMATOID ARTHRITIS
     Dosage: TWO TABLETS IN A DAY
     Route: 048
     Dates: start: 20110101

REACTIONS (3)
  - NASOPHARYNGITIS [None]
  - MEDICATION ERROR [None]
  - PNEUMONIA [None]
